FAERS Safety Report 12646628 (Version 1)
Quarter: 2016Q3

REPORT INFORMATION
  Report Type: Spontaneous
  Country: US (occurrence: US)
  Receive Date: 20160812
  Receipt Date: 20160812
  Transmission Date: 20161109
  Serious: Yes (Other)
  Sender: FDA-Public Use
  Company Number: US-APOTEX-2016AP010244

PATIENT
  Age: 55 Year
  Sex: Male

DRUGS (1)
  1. CABERGOLINE. [Suspect]
     Active Substance: CABERGOLINE
     Indication: PROLACTIN-PRODUCING PITUITARY TUMOUR
     Dosage: 0.5 MG, T.I.W
     Route: 065

REACTIONS (4)
  - Ophthalmic vein thrombosis [Unknown]
  - Sinus disorder [Unknown]
  - Cavernous sinus thrombosis [Unknown]
  - Pituitary haemorrhage [Unknown]
